FAERS Safety Report 7450270-0 (Version None)
Quarter: 2011Q2

REPORT INFORMATION
  Report Type: 
  Country: None (occurrence: None)
  Receive Date: 20110428
  Receipt Date: 20110428
  Transmission Date: 20111010
  Serious: Yes (Other)
  Sender: FDA-Public Use
  Company Number: None

PATIENT
  Age: 3 Year
  Sex: Male
  Weight: 16.7831 kg

DRUGS (1)
  1. CEFDINIR [Suspect]
     Indication: PHARYNGITIS STREPTOCOCCAL
     Dosage: 1 TSP 2X DAILY PO
     Route: 048
     Dates: start: 20110425, end: 20110427

REACTIONS (3)
  - DIARRHOEA [None]
  - FAECES DISCOLOURED [None]
  - DRUG HYPERSENSITIVITY [None]
